FAERS Safety Report 8199010 (Version 2)
Quarter: 2013Q1

REPORT INFORMATION
  Report Type: Spontaneous
  Country: US (occurrence: US)
  Receive Date: 20111025
  Receipt Date: 20130103
  Transmission Date: 20140127
  Serious: Yes (Death, Hospitalization)
  Sender: FDA-Public Use
  Company Number: US-GLAXOSMITHKLINE-A0918365A

PATIENT
  Age: 60 Year
  Sex: Male

DRUGS (1)
  1. AVANDIA [Suspect]
     Indication: DIABETES MELLITUS
     Dosage: 8MG PER DAY
     Route: 048
     Dates: start: 2002, end: 200503

REACTIONS (7)
  - Death [Fatal]
  - Myocardial infarction [Unknown]
  - Blood pressure abnormal [Unknown]
  - Renal disorder [Unknown]
  - Lung disorder [Unknown]
  - Cerebrovascular accident [Unknown]
  - Bone cancer [Unknown]
